FAERS Safety Report 5753945-4 (Version None)
Quarter: 2008Q2

REPORT INFORMATION
  Report Type: 
  Country: None (occurrence: None)
  Receive Date: 20080530
  Receipt Date: 20080521
  Transmission Date: 20081010
  Serious: Yes (Hospitalization)
  Sender: FDA-Public Use
  Company Number: US-ABBOTT-08P-163-0453082-00

PATIENT
  Sex: Male
  Weight: 110 kg

DRUGS (12)
  1. HUMIRA [Suspect]
     Indication: PSORIASIS
     Route: 058
     Dates: start: 20060426, end: 20080519
  2. OLMESARTAN MEDOXOMIL [Concomitant]
     Indication: HYPERTENSION
     Dates: start: 20060420
  3. TYLENOL PM [Concomitant]
     Indication: INSOMNIA
     Dates: start: 20030801
  4. ASPIRIN [Concomitant]
     Indication: CARDIOVASCULAR EVENT PROPHYLAXIS
     Dates: start: 20050324
  5. ATORVASTATIN CALCIUM [Concomitant]
     Indication: HYPERCHOLESTEROLAEMIA
     Dates: start: 20051115
  6. GLUCOSAMINE CHONDROITIN [Concomitant]
     Indication: MEDICAL DIET
     Dates: start: 20051204
  7. GINKGO BILOBA [Concomitant]
     Indication: MEDICAL DIET
     Dates: start: 20050808
  8. LEVOTHYROXINE SODIUM [Concomitant]
     Indication: HYPERTHYROIDISM
     Dates: start: 20051213
  9. OMEGA-3 MARINE TRIGLYCERIDES [Concomitant]
     Indication: HYPERCHOLESTEROLAEMIA
     Dates: start: 20060401
  10. SIMVASTATIN [Concomitant]
     Indication: HYPERCHOLESTEROLAEMIA
     Dates: start: 20070121
  11. INDOMETHACIN [Concomitant]
     Indication: GOUT
     Dates: start: 20070131
  12. AMOXICILLIN [Concomitant]
     Indication: UPPER RESPIRATORY TRACT INFECTION
     Dates: start: 20080208, end: 20080218

REACTIONS (2)
  - GASTROINTESTINAL INFLAMMATION [None]
  - INTESTINAL OBSTRUCTION [None]
